FAERS Safety Report 8031100-5 (Version None)
Quarter: 2012Q1

REPORT INFORMATION
  Report Type: 
  Country: None (occurrence: None)
  Receive Date: 20120109
  Receipt Date: 20111230
  Transmission Date: 20120608
  Serious: Yes (Hospitalization)
  Sender: FDA-Public Use
  Company Number: KR-ELI_LILLY_AND_COMPANY-KR201109002489

PATIENT
  Age: 28 Year
  Sex: Female

DRUGS (1)
  1. HUMALOG MIX 75/25 [Suspect]
     Indication: GESTATIONAL DIABETES
     Dosage: 5 U, BID
     Route: 058
     Dates: start: 20110701

REACTIONS (4)
  - MATERNAL EXPOSURE DURING PREGNANCY [None]
  - UTERINE CONTRACTIONS DURING PREGNANCY [None]
  - PREMATURE LABOUR [None]
  - EXPOSURE DURING BREAST FEEDING [None]
